FAERS Safety Report 4304004-9 (Version None)
Quarter: 2004Q1

REPORT INFORMATION
  Report Type: 
  Country: None (occurrence: None)
  Receive Date: 20040223
  Receipt Date: 20031111
  Transmission Date: 20041129
  Serious: No
  Sender: FDA-Public Use
  Company Number: PHEH2003US10391

PATIENT
  Age: 48 Year
  Sex: Female
  Weight: 68 kg

DRUGS (2)
  1. ZELNORM [Suspect]
     Indication: IRRITABLE BOWEL SYNDROME
     Dosage: 6 MG, BID, ORAL
     Route: 048
     Dates: start: 20031016
  2. WELLBUTRIN (BUPORPION HYDROCHLORIDE) [Concomitant]

REACTIONS (3)
  - CRYING [None]
  - JOINT SWELLING [None]
  - OEDEMA PERIPHERAL [None]
